FAERS Safety Report 12285515 (Version 3)
Quarter: 2018Q1

REPORT INFORMATION
  Report Type: Report from Study
  Country: CA (occurrence: CA)
  Receive Date: 20160420
  Receipt Date: 20180125
  Transmission Date: 20180508
  Serious: Yes (Other)
  Sender: FDA-Public Use
  Company Number: CA-ROCHE-1729218

PATIENT
  Age: 59 Year
  Sex: Female

DRUGS (1)
  1. XOLAIR [Suspect]
     Active Substance: OMALIZUMAB
     Indication: CHRONIC SPONTANEOUS URTICARIA
     Dosage: 300 MG, EVERY 4 WEEKS
     Route: 058
     Dates: start: 20160311

REACTIONS (14)
  - Urticaria [Unknown]
  - Abdominal pain upper [Unknown]
  - Dizziness [Unknown]
  - Thermal burn [Unknown]
  - Asthenia [Unknown]
  - Insomnia [Unknown]
  - Peripheral swelling [Unknown]
  - Lymphoma [Unknown]
  - Skin discolouration [Unknown]
  - Aphasia [Unknown]
  - Pruritus generalised [Recovering/Resolving]
  - Dyspnoea [Unknown]
  - Scratch [Unknown]
  - Gait disturbance [Unknown]

NARRATIVE: CASE EVENT DATE: 20160311
